FAERS Safety Report 14673433 (Version 1)
Quarter: 2018Q1

REPORT INFORMATION
  Report Type: Report from Study
  Country: US (occurrence: US)
  Receive Date: 20180323
  Receipt Date: 20180323
  Transmission Date: 20180509
  Serious: Yes (Death, Other)
  Sender: FDA-Public Use
  Company Number: US-PFIZER INC-2017407809

PATIENT
  Age: 82 Year
  Sex: Female

DRUGS (1)
  1. IBRANCE [Suspect]
     Active Substance: PALBOCICLIB
     Indication: BREAST CANCER FEMALE
     Dosage: 125 MG, CYCLIC (ONCE DAILY 3 WEEKS ON/1 WEEK OFF)
     Route: 048
     Dates: start: 20170915

REACTIONS (13)
  - Dry skin [Unknown]
  - Blister [Unknown]
  - White blood cell count decreased [Recovered/Resolved]
  - Deafness [Unknown]
  - Dizziness [Recovered/Resolved]
  - Alopecia [Unknown]
  - Dyspnoea [Not Recovered/Not Resolved]
  - Vaginal discharge [Unknown]
  - Lung disorder [Unknown]
  - Dysgeusia [Unknown]
  - Cough [Not Recovered/Not Resolved]
  - Condition aggravated [Not Recovered/Not Resolved]
  - Death [Fatal]

NARRATIVE: CASE EVENT DATE: 2017
